FAERS Safety Report 4809110-8 (Version None)
Quarter: 2005Q4

REPORT INFORMATION
  Report Type: 
  Country: None (occurrence: None)
  Receive Date: 20051021
  Receipt Date: 20020701
  Transmission Date: 20060501
  Serious: No
  Sender: FDA-Public Use
  Company Number: DE_020709082

PATIENT
  Age: 31 Year
  Sex: Female

DRUGS (7)
  1. ZYPREXA [Suspect]
     Indication: HALLUCINATION
     Dosage: 20 MG/DAY
     Dates: start: 20020601
  2. ZYPREXA [Suspect]
     Indication: MOOD ALTERED
     Dosage: 20 MG/DAY
     Dates: start: 20020601
  3. ZYPREXA [Suspect]
     Indication: SCHIZOPHRENIA, RESIDUAL TYPE
     Dosage: 20 MG/DAY
     Dates: start: 20020601
  4. LORAZEPAM [Concomitant]
  5. VALPROATE SODIUM [Concomitant]
  6. CITALOPRAM HYDROBROMIDE [Concomitant]
  7. LEVOTHYROXINE SODIUM [Concomitant]

REACTIONS (1)
  - WHITE BLOOD CELL COUNT DECREASED [None]
